FAERS Safety Report 16492813 (Version 1)
Quarter: 2019Q2

REPORT INFORMATION
  Report Type: Spontaneous
  Country: US (occurrence: US)
  Receive Date: 20190628
  Receipt Date: 20190628
  Transmission Date: 20190711
  Serious: No
  Sender: FDA-Public Use
  Company Number: US-ASTRAZENECA-2019SE82555

PATIENT
  Age: 666 Month
  Sex: Male
  Weight: 158.8 kg

DRUGS (4)
  1. AMLODIPINE [Concomitant]
     Active Substance: AMLODIPINE BESYLATE
     Indication: BLOOD PRESSURE ABNORMAL
  2. GENERIC ZOCOR [Concomitant]
     Indication: BLOOD CHOLESTEROL ABNORMAL
  3. BABY ASPIRIN [Concomitant]
     Active Substance: ASPIRIN
  4. XIGDUO XR [Suspect]
     Active Substance: DAPAGLIFLOZIN PROPANEDIOL\METFORMIN HYDROCHLORIDE
     Indication: GLUCOSE TOLERANCE IMPAIRED
     Dosage: 5/500 MG ONCE DAILY
     Route: 048
     Dates: start: 201812

REACTIONS (3)
  - Carcinoembryonic antigen increased [Unknown]
  - Off label use [Unknown]
  - Product use in unapproved indication [Unknown]

NARRATIVE: CASE EVENT DATE: 201901
